FAERS Safety Report 7245990-7 (Version None)
Quarter: 2011Q1

REPORT INFORMATION
  Report Type: 
  Country: None (occurrence: None)
  Receive Date: 20110126
  Receipt Date: 20110124
  Transmission Date: 20110831
  Serious: Yes (Other)
  Sender: FDA-Public Use
  Company Number: US-ROXANE LABORATORIES, INC.-2010-RO-00559RO

PATIENT
  Age: 35 Year
  Sex: Male

DRUGS (11)
  1. SERTRALINE HYDROCHLORIDE [Suspect]
  2. LEVETIRACETAM [Suspect]
     Dosage: 3000 MG
     Route: 048
  3. RITONAVIR [Suspect]
     Indication: HIV INFECTION
  4. ATAZANAVIR [Suspect]
     Indication: HIV INFECTION
  5. CLONAZEPAM [Suspect]
  6. HAART (HIGHLY ACTIVE ANTIRETROVIRAL THERAPY) [Concomitant]
     Indication: HIV INFECTION
  7. RIFABUTIN [Suspect]
     Indication: MYCOBACTERIUM AVIUM COMPLEX INFECTION
  8. CLARITHROMYCIN [Suspect]
  9. LEVETIRACETAM [Suspect]
     Indication: PARTIAL SEIZURES
     Dosage: 1000 MG
     Route: 048
  10. DAPSONE [Suspect]
  11. TRUVADA [Suspect]
     Indication: HIV INFECTION

REACTIONS (5)
  - DRUG INEFFECTIVE [None]
  - HAEMATURIA [None]
  - ANAEMIA [None]
  - MELAENA [None]
  - THROMBOCYTOPENIA [None]
